FAERS Safety Report 6975777-1 (Version None)
Quarter: 2010Q3

REPORT INFORMATION
  Report Type: 
  Country: None (occurrence: None)
  Receive Date: 20100910
  Receipt Date: 20090326
  Transmission Date: 20110219
  Serious: No
  Sender: FDA-Public Use
  Company Number: US-WYE-H08734509

PATIENT
  Sex: Male
  Weight: 106.69 kg

DRUGS (1)
  1. PRISTIQ [Suspect]
     Indication: ATTENTION DEFICIT/HYPERACTIVITY DISORDER
     Route: 048
     Dates: start: 20081001

REACTIONS (3)
  - ANHEDONIA [None]
  - DEPRESSED MOOD [None]
  - FATIGUE [None]
